FAERS Safety Report 15606683 (Version 1)
Quarter: 2018Q4

REPORT INFORMATION
  Report Type: Spontaneous
  Country: US (occurrence: US)
  Receive Date: 20181111
  Receipt Date: 20181111
  Transmission Date: 20190205
  Serious: Yes (Disabling)
  Sender: FDA-Public Use
  Company Number: None

PATIENT
  Age: 44 Year
  Sex: Female
  Weight: 71.55 kg

DRUGS (7)
  1. DEXILANT [Suspect]
     Active Substance: DEXLANSOPRAZOLE
     Indication: GASTROOESOPHAGEAL REFLUX DISEASE
     Route: 048
     Dates: start: 20121112, end: 20181101
  2. WELLBUTRIN [Concomitant]
     Active Substance: BUPROPION HYDROCHLORIDE
  3. ALLEGRA [Concomitant]
     Active Substance: FEXOFENADINE HYDROCHLORIDE
  4. BABY ASPIRIN [Concomitant]
     Active Substance: ASPIRIN
  5. DEXILANT [Suspect]
     Active Substance: DEXLANSOPRAZOLE
     Indication: HIATUS HERNIA
     Route: 048
     Dates: start: 20121112, end: 20181101
  6. RANITIDINE. [Concomitant]
     Active Substance: RANITIDINE
  7. MAGNESIUM [Concomitant]
     Active Substance: MAGNESIUM

REACTIONS (6)
  - Gluten sensitivity [None]
  - Abdominal distension [None]
  - Facial pain [None]
  - Neuralgia [None]
  - Anxiety [None]
  - Depression [None]

NARRATIVE: CASE EVENT DATE: 20181003
